FAERS Safety Report 17766084 (Version 2)
Quarter: 2020Q2

REPORT INFORMATION
  Report Type: Spontaneous
  Country: PL (occurrence: PL)
  Receive Date: 20200511
  Receipt Date: 20200519
  Transmission Date: 20200714
  Serious: Yes (Death, Other)
  Sender: FDA-Public Use
  Company Number: PL-ABBVIE-19K-129-3199864-00

PATIENT
  Sex: Male

DRUGS (1)
  1. IMBRUVICA [Suspect]
     Active Substance: IBRUTINIB
     Indication: PLASMA CELL MYELOMA
     Route: 048

REACTIONS (4)
  - Disease progression [Fatal]
  - Product use in unapproved indication [Unknown]
  - Off label use [Unknown]
  - Drug ineffective [Unknown]
